FAERS Safety Report 16657030 (Version 2)
Quarter: 2019Q4

REPORT INFORMATION
  Report Type: Spontaneous
  Country: US (occurrence: US)
  Receive Date: 20190801
  Receipt Date: 20191018
  Transmission Date: 20200122
  Serious: No
  Sender: FDA-Public Use
  Company Number: US-PFIZER INC-2019328922

PATIENT
  Age: 80 Year
  Sex: Male

DRUGS (3)
  1. VYNDAQEL [Suspect]
     Active Substance: TAFAMIDIS MEGLUMINE
     Indication: FLUID IMBALANCE
  2. LASIX [Concomitant]
     Active Substance: FUROSEMIDE
     Dosage: 1 DF, ALTERNATE DAY (DATE STARTED: 4 MONTHS AGO/WATER PILL)
  3. VYNDAQEL [Suspect]
     Active Substance: TAFAMIDIS MEGLUMINE
     Indication: AMYLOIDOSIS
     Dosage: 80 MG, DAILY (2 MONTHS AGO)

REACTIONS (4)
  - Dyspnoea [Unknown]
  - Malaise [Not Recovered/Not Resolved]
  - Back disorder [Unknown]
  - Dysphagia [Unknown]
